FAERS Safety Report 5649487-7 (Version None)
Quarter: 2008Q1

REPORT INFORMATION
  Report Type: 
  Country: None (occurrence: None)
  Receive Date: 20080131
  Receipt Date: 20071003
  Transmission Date: 20080703
  Serious: No
  Sender: FDA-Public Use
  Company Number: US200705001343

PATIENT
  Age: 67 Year
  Sex: Female
  Weight: 79.4 kg

DRUGS (8)
  1. BYETTA [Suspect]
     Indication: INSULIN-REQUIRING TYPE 2 DIABETES MELLITUS
     Dosage: 5 UG, 2/D, SUBCUTANEOUS ; 10 UG, 2/D, SUBCUTANEOUS
     Route: 058
     Dates: start: 20070418, end: 20070101
  2. BYETTA [Suspect]
     Indication: INSULIN-REQUIRING TYPE 2 DIABETES MELLITUS
     Dosage: 5 UG, 2/D, SUBCUTANEOUS ; 10 UG, 2/D, SUBCUTANEOUS
     Route: 058
     Dates: start: 20070501, end: 20070501
  3. BYETTA [Suspect]
     Dosage: 5 UG, 2/D, SUBCUTANEOUS
     Route: 058
     Dates: start: 20070401
  4. METFORMIN HCL [Concomitant]
  5. LANTUS [Concomitant]
  6. ACTOS [Concomitant]
  7. ARTHROTEC [Concomitant]
  8. NAPROSYN /USA/ (NAPROXEN) [Concomitant]

REACTIONS (5)
  - ASTHENIA [None]
  - BLOOD GLUCOSE DECREASED [None]
  - BLOOD GLUCOSE INCREASED [None]
  - DECREASED APPETITE [None]
  - WEIGHT DECREASED [None]
